FAERS Safety Report 9665009 (Version 3)
Quarter: 2013Q4

REPORT INFORMATION
  Report Type: Spontaneous
  Country: US (occurrence: US)
  Receive Date: 20131101
  Receipt Date: 20131202
  Transmission Date: 20140711
  Serious: Yes (Hospitalization, Other)
  Sender: FDA-Public Use
  Company Number: US-009507513-1310USA013256

PATIENT
  Sex: Female
  Weight: 93.42 kg

DRUGS (7)
  1. JANUMET [Suspect]
     Dosage: 1 DF, BID
     Route: 048
  2. JANUVIA [Suspect]
     Route: 048
  3. METFORMIN [Concomitant]
     Dosage: 1 DF, BID
     Route: 048
  4. GLIPIZIDE [Concomitant]
     Dosage: 1 DF, BID
     Route: 048
  5. ATORVASTATIN [Concomitant]
     Dosage: 1 DF, HS
     Route: 048
  6. PRINIVIL [Concomitant]
     Dosage: 1 DF, QD
     Route: 048
  7. PROPRANOLOL HYDROCHLORIDE [Concomitant]

REACTIONS (9)
  - Systolic hypertension [Unknown]
  - Hepatomegaly [Unknown]
  - Nephrolithiasis [Unknown]
  - Hiatus hernia [Unknown]
  - Nodule [Unknown]
  - Ventricular extrasystoles [Unknown]
  - Decreased appetite [Unknown]
  - Pancreatitis acute [Recovered/Resolved]
  - Hypoglycaemia [Unknown]
